FAERS Safety Report 5769628-0 (Version None)
Quarter: 2008Q2

REPORT INFORMATION
  Report Type: 
  Country: None (occurrence: None)
  Receive Date: 20080612
  Receipt Date: 20080401
  Transmission Date: 20081010
  Serious: No
  Sender: FDA-Public Use
  Company Number: US-ABBOTT-08P-163-0445671-00

PATIENT
  Sex: Male
  Weight: 118.04 kg

DRUGS (5)
  1. HUMIRA [Suspect]
     Indication: CROHN'S DISEASE
     Dates: start: 20080206, end: 20080206
  2. HUMIRA [Suspect]
     Dates: start: 20080220, end: 20080220
  3. HUMIRA [Suspect]
     Dates: start: 20080305
  4. MORPHINE [Concomitant]
     Indication: PAIN
     Route: 048
  5. MORPHINE [Concomitant]
     Indication: CROHN'S DISEASE

REACTIONS (1)
  - DRUG EFFECT DECREASED [None]
